FAERS Safety Report 6151814-1 (Version None)
Quarter: 2009Q2

REPORT INFORMATION
  Report Type: 
  Country: None (occurrence: None)
  Receive Date: 20090410
  Receipt Date: 20090403
  Transmission Date: 20091009
  Serious: Yes (Hospitalization)
  Sender: FDA-Public Use
  Company Number: US-B.I. PHARMACEUTICALS,INC./RIDGEFIELD-2009-BP-02828BP

PATIENT
  Sex: Female

DRUGS (4)
  1. DULCOLAX [Suspect]
     Indication: CONSTIPATION
     Dosage: 5MG
     Route: 048
     Dates: start: 20090307, end: 20090308
  2. LEVOTHYROXINE SODIUM [Concomitant]
  3. LISINOPRIL [Concomitant]
  4. HYDROCHLOROTHIAZIDE [Concomitant]

REACTIONS (7)
  - ABDOMINAL PAIN LOWER [None]
  - ASTHENIA [None]
  - HAEMATOCHEZIA [None]
  - HAEMORRHOIDS [None]
  - LOSS OF CONSCIOUSNESS [None]
  - SKIN DISCOLOURATION [None]
  - VOMITING [None]
